FAERS Safety Report 6495732-8 (Version None)
Quarter: 2009Q4

REPORT INFORMATION
  Report Type: 
  Country: None (occurrence: None)
  Receive Date: 20091214
  Receipt Date: 20090806
  Transmission Date: 20100525
  Serious: No
  Sender: FDA-Public Use
  Company Number: US-BRISTOL-MYERS SQUIBB COMPANY-14731541

PATIENT
  Age: 51 Year
  Sex: Female

DRUGS (6)
  1. ABILIFY [Suspect]
  2. PEXEVA [Concomitant]
  3. SYNTHROID [Concomitant]
  4. TOPAMAX [Concomitant]
  5. XANAX [Concomitant]
  6. RESTORIL [Concomitant]

REACTIONS (4)
  - ANXIETY [None]
  - INSOMNIA [None]
  - NAUSEA [None]
  - RESTLESSNESS [None]
